FAERS Safety Report 16238473 (Version 1)
Quarter: 2019Q2

REPORT INFORMATION
  Report Type: Spontaneous
  Country: US (occurrence: US)
  Receive Date: 20190424
  Receipt Date: 20190424
  Transmission Date: 20190711
  Serious: Yes (Death)
  Sender: FDA-Public Use
  Company Number: None

PATIENT
  Age: 71 Year
  Sex: Female
  Weight: 40.5 kg

DRUGS (2)
  1. PIMAVANSERIN [Suspect]
     Active Substance: PIMAVANSERIN
     Indication: HALLUCINATION
     Dates: start: 20190411
  2. PIMAVANSERIN [Suspect]
     Active Substance: PIMAVANSERIN
     Indication: DEMENTIA
     Dates: start: 20190411

REACTIONS (4)
  - Gait disturbance [None]
  - Fall [None]
  - Arrhythmia [None]
  - Mania [None]

NARRATIVE: CASE EVENT DATE: 20190424
